FAERS Safety Report 13665206 (Version 2)
Quarter: 2017Q3

REPORT INFORMATION
  Report Type: Spontaneous
  Country: BR (occurrence: BR)
  Receive Date: 20170619
  Receipt Date: 20170714
  Transmission Date: 20171127
  Serious: No
  Sender: FDA-Public Use
  Company Number: BR-PFIZER INC-2017260309

PATIENT
  Age: 45 Year
  Sex: Female

DRUGS (8)
  1. LYRICA [Suspect]
     Active Substance: PREGABALIN
     Indication: PAIN
     Dosage: 1-2 DF, DAILY (AT 150-300MG AFTER DINNER)
     Dates: start: 201701
  2. NATIFA [Concomitant]
     Active Substance: ESTRADIOL
     Indication: HORMONE THERAPY
     Dosage: UNK
     Dates: start: 2016
  3. LYRICA [Suspect]
     Active Substance: PREGABALIN
     Indication: SLEEP DISORDER
  4. BUSCOPAN [Concomitant]
     Active Substance: BUTYLSCOPOLAMINE BROMIDE
     Indication: PAIN
     Dosage: UNK
     Dates: start: 2013
  5. OSTEONUTRI [Concomitant]
     Indication: OSTEOPOROSIS
     Dosage: 1 TABLET WHEN WAKING UP
     Dates: start: 2017
  6. DIPIRONA [Concomitant]
     Active Substance: METAMIZOLE
     Indication: PAIN
     Dosage: UNK
     Dates: start: 2013
  7. VELIJA [Concomitant]
     Active Substance: DULOXETINE HYDROCHLORIDE
     Indication: ANTIDEPRESSANT THERAPY
     Dosage: 1 TABLET AT NIGHT
  8. LEXOTAN [Concomitant]
     Active Substance: BROMAZEPAM
     Indication: RELAXATION THERAPY
     Dosage: 1 TO 2 TABLETS AT NIGHT

REACTIONS (1)
  - Drug ineffective for unapproved indication [Not Recovered/Not Resolved]

NARRATIVE: CASE EVENT DATE: 2017
